FAERS Safety Report 5345111-1 (Version None)
Quarter: 2007Q2

REPORT INFORMATION
  Report Type: 
  Country: None (occurrence: None)
  Receive Date: 20070601
  Receipt Date: 20070516
  Transmission Date: 20071010
  Serious: Yes (Other)
  Sender: FDA-Public Use
  Company Number: 2007VX001456

PATIENT
  Sex: Female

DRUGS (2)
  1. EFUDEX [Suspect]
     Indication: ACTINIC KERATOSIS
     Dosage: SEE IMAGE
     Route: 061
     Dates: end: 20060701
  2. EFUDEX [Suspect]
     Indication: ACTINIC KERATOSIS
     Dosage: SEE IMAGE
     Route: 061
     Dates: start: 20060701

REACTIONS (3)
  - HYPERSENSITIVITY [None]
  - INFLAMMATION [None]
  - RASH GENERALISED [None]
